FAERS Safety Report 5005152-0 (Version None)
Quarter: 2006Q2

REPORT INFORMATION
  Report Type: 
  Country: None (occurrence: None)
  Receive Date: 20060515
  Receipt Date: 20060501
  Transmission Date: 20061013
  Serious: Yes (Disabling, Other)
  Sender: FDA-Public Use
  Company Number: 2006059260

PATIENT
  Sex: Male

DRUGS (12)
  1. LIPITOR [Suspect]
     Indication: BLOOD CHOLESTEROL INCREASED
     Dosage: 10 MG (10 MG, 1 IN 1 D), ORAL
     Route: 048
     Dates: start: 20040129
  2. CELEBREX [Suspect]
     Indication: INFLAMMATION
     Dosage: (200 MG),  ORAL
     Route: 048
  3. NEURONTIN [Suspect]
     Indication: POST LAMINECTOMY SYNDROME
     Dosage: 1200 MG (400 MG, 3 IN 1 D), ORAL
     Route: 048
     Dates: start: 20030101
  4. LYRICA [Suspect]
     Indication: POST LAMINECTOMY SYNDROME
     Dates: start: 20060101, end: 20060101
  5. BEXTRA [Suspect]
     Indication: ILL-DEFINED DISORDER
  6. PREVACID [Suspect]
     Indication: ILL-DEFINED DISORDER
     Dosage: 30 MG (30 MG, 1 IN 1 D), ORAL
     Route: 048
  7. CHLORTHALIDONE [Concomitant]
  8. AMILORIDE (AMILORIDE) [Concomitant]
  9. KLOR-CON [Concomitant]
  10. K-DUR 10 [Concomitant]
  11. MULTIPLE VITAMINS (ASCORBIC ACID, ERGOCALCIFEROL, FOLIC ACID, RETINOL, [Concomitant]
  12. ASPIRIN [Concomitant]

REACTIONS (22)
  - BLOOD CHOLESTEROL INCREASED [None]
  - BLOOD TRIGLYCERIDES INCREASED [None]
  - BURNING SENSATION [None]
  - CHEST DISCOMFORT [None]
  - COUGH [None]
  - DIARRHOEA [None]
  - DRUG INEFFECTIVE [None]
  - EXOSTOSIS [None]
  - FRACTURE [None]
  - GASTROENTERITIS VIRAL [None]
  - HYPOAESTHESIA [None]
  - INFLAMMATION [None]
  - NEUROPATHY PERIPHERAL [None]
  - PARAESTHESIA [None]
  - PARAESTHESIA ORAL [None]
  - PNEUMONIA [None]
  - POST LAMINECTOMY SYNDROME [None]
  - POST PROCEDURAL COMPLICATION [None]
  - POSTOPERATIVE THROMBOSIS [None]
  - PROCEDURAL COMPLICATION [None]
  - SURGICAL PROCEDURE REPEATED [None]
  - UNEVALUABLE EVENT [None]
